FAERS Safety Report 18141144 (Version 1)
Quarter: 2020Q3

REPORT INFORMATION
  Report Type: Spontaneous
  Country: FR (occurrence: FR)
  Receive Date: 20200812
  Receipt Date: 20200812
  Transmission Date: 20201103
  Serious: Yes (Other)
  Sender: FDA-Public Use
  Company Number: FR-TRIS PHARMA, INC.-20FR009031

PATIENT

DRUGS (5)
  1. MORPHINE [Suspect]
     Active Substance: MORPHINE
     Indication: BACK PAIN
     Dosage: UNK (AT A MEAN DOSE OF 50MG OF OXYNORM PER DAY)
     Route: 042
  2. OXYCODONE [Suspect]
     Active Substance: OXYCODONE
     Indication: PROCEDURAL PAIN
     Dosage: 5 MILLIGRAM, QID
     Route: 065
  3. MORPHINE SULFATE. [Suspect]
     Active Substance: MORPHINE SULFATE
     Indication: PROCEDURAL PAIN
     Dosage: UNK
     Route: 048
  4. NEFOPAM [Suspect]
     Active Substance: NEFOPAM
     Indication: PROCEDURAL PAIN
     Dosage: 120 MILLIGRAM, QD
     Route: 042
  5. CORTICOSTEROID NOS [Concomitant]
     Active Substance: CORTICOSTEROID NOS
     Indication: PRENATAL CARE
     Route: 065

REACTIONS (2)
  - Maternal exposure during pregnancy [Unknown]
  - Premature labour [Unknown]
